FAERS Safety Report 25062407 (Version 1)
Quarter: 2025Q1

REPORT INFORMATION
  Report Type: Report from Study
  Country: CA (occurrence: CA)
  Receive Date: 20250311
  Receipt Date: 20250311
  Transmission Date: 20250408
  Serious: Yes (Other)
  Sender: TAKEDA
  Company Number: CA-TAKEDA-2025TUS023184

PATIENT
  Sex: Female
  Weight: 2.32 kg

DRUGS (3)
  1. VEDOLIZUMAB [Suspect]
     Active Substance: VEDOLIZUMAB
     Indication: Crohn^s disease
     Route: 063
  2. VEDOLIZUMAB [Suspect]
     Active Substance: VEDOLIZUMAB
     Indication: Crohn^s disease
     Dosage: 108 MILLIGRAM, Q2WEEKS
     Route: 063
     Dates: start: 20240828
  3. LOVENOX [Concomitant]
     Active Substance: ENOXAPARIN SODIUM
     Indication: Factor V Leiden mutation
     Dosage: UNK UNK, QD
     Dates: start: 20240626

REACTIONS (6)
  - Foetal growth restriction [Unknown]
  - Foetal hypokinesia [Unknown]
  - Foetal exposure during pregnancy [Unknown]
  - Hypothermia neonatal [Unknown]
  - Low birth weight baby [Unknown]
  - Premature baby [Unknown]
